FAERS Safety Report 7738163-2 (Version None)
Quarter: 2011Q3

REPORT INFORMATION
  Report Type: 
  Country: None (occurrence: None)
  Receive Date: 20110908
  Receipt Date: 20110906
  Transmission Date: 20111222
  Serious: Yes (Death)
  Sender: FDA-Public Use
  Company Number: VE-PFIZER INC-2011198803

PATIENT
  Age: 39 Year
  Sex: Male

DRUGS (2)
  1. LIPITOR [Suspect]
     Indication: INFARCTION
     Dosage: 40 MG, 1X/DAY
     Route: 048
     Dates: start: 20100901
  2. ENALAPRIL [Concomitant]
     Indication: HYPERTENSION
     Dosage: 40 MG, UNK
     Route: 048

REACTIONS (1)
  - INFARCTION [None]
